FAERS Safety Report 11588993 (Version 2)
Quarter: 2016Q4

REPORT INFORMATION
  Report Type: Spontaneous
  Country: US (occurrence: US)
  Receive Date: 20151002
  Receipt Date: 20161104
  Transmission Date: 20170206
  Serious: Yes (Other)
  Sender: FDA-Public Use
  Company Number: US-BAYER-2015-431170

PATIENT
  Age: 28 Year
  Sex: Female

DRUGS (5)
  1. PROZAC [Concomitant]
     Active Substance: FLUOXETINE HYDROCHLORIDE
  2. POTASSIUM [Concomitant]
     Active Substance: POTASSIUM
  3. LASIX [Concomitant]
     Active Substance: FUROSEMIDE
  4. K-TAB [Concomitant]
     Active Substance: POTASSIUM CHLORIDE
  5. MIRENA [Suspect]
     Active Substance: LEVONORGESTREL
     Dosage: 20 MCG/24HR, CONT
     Route: 015
     Dates: start: 20081023, end: 20130923

REACTIONS (7)
  - Injury [None]
  - Benign intracranial hypertension [None]
  - Blindness [None]
  - Tinnitus [None]
  - Papilloedema [None]
  - Pain [None]
  - Visual impairment [None]

NARRATIVE: CASE EVENT DATE: 20100125
